FAERS Safety Report 5204462-1 (Version None)
Quarter: 2007Q1

REPORT INFORMATION
  Report Type: 
  Country: None (occurrence: None)
  Receive Date: 20070110
  Receipt Date: 20060403
  Transmission Date: 20070707
  Serious: No
  Sender: FDA-Public Use
  Company Number: US-BRISTOL-MYERS SQUIBB COMPANY-13334362

PATIENT
  Age: 53 Year
  Sex: Male
  Weight: 73 kg

DRUGS (6)
  1. ABILIFY [Suspect]
     Indication: SCHIZOPHRENIA
     Route: 048
     Dates: start: 20060329
  2. CLARITIN [Concomitant]
  3. ALLEGRA [Concomitant]
  4. XANAX [Concomitant]
  5. IBUPROFEN [Concomitant]
  6. ASPIRIN [Concomitant]

REACTIONS (6)
  - DYSACUSIS [None]
  - EYE PAIN [None]
  - FATIGUE [None]
  - FLATULENCE [None]
  - HALLUCINATION, AUDITORY [None]
  - INCREASED APPETITE [None]
